FAERS Safety Report 5510707-0 (Version None)
Quarter: 2007Q4

REPORT INFORMATION
  Report Type: 
  Country: None (occurrence: None)
  Receive Date: 20071108
  Receipt Date: 20071105
  Transmission Date: 20080405
  Serious: Yes (Hospitalization)
  Sender: FDA-Public Use
  Company Number: A0689850A

PATIENT
  Age: 83 Year
  Sex: Male

DRUGS (1)
  1. COREG [Suspect]
     Dosage: 12.5MG TWICE PER DAY
     Route: 065
     Dates: start: 20040101

REACTIONS (6)
  - COUGH [None]
  - INCREASED UPPER AIRWAY SECRETION [None]
  - LOSS OF CONSCIOUSNESS [None]
  - NAUSEA [None]
  - RETCHING [None]
  - VOMITING [None]
